FAERS Safety Report 21034297 (Version 1)
Quarter: 2022Q3

REPORT INFORMATION
  Report Type: Spontaneous
  Country: SI (occurrence: SI)
  Receive Date: 20220701
  Receipt Date: 20220701
  Transmission Date: 20221027
  Serious: Yes (Hospitalization, Other)
  Sender: FDA-Public Use
  Company Number: None

PATIENT
  Age: 22 Year
  Sex: Female

DRUGS (8)
  1. LEMTRADA [Suspect]
     Active Substance: ALEMTUZUMAB
     Indication: Relapsing-remitting multiple sclerosis
     Dosage: 1 DF
     Route: 041
     Dates: start: 20200210, end: 20210212
  2. LEMTRADA [Suspect]
     Active Substance: ALEMTUZUMAB
     Indication: Dermatitis atopic
     Dosage: 12 MG
     Route: 041
     Dates: start: 201812
  3. LEMTRADA [Suspect]
     Active Substance: ALEMTUZUMAB
     Indication: Autoimmune thyroiditis
     Dosage: 12 MG
     Route: 041
     Dates: start: 201902
  4. CETIXIN [Concomitant]
     Route: 048
  5. ESOMEPRAZOLE MAGNESIUM [Concomitant]
     Active Substance: ESOMEPRAZOLE MAGNESIUM
     Dosage: 20 MG
  6. EUTHYROX [Concomitant]
     Active Substance: LEVOTHYROXINE SODIUM
     Dosage: 75 UG, 3 DAYS A WEEK
     Route: 048
  7. EUTHYROX [Concomitant]
     Active Substance: LEVOTHYROXINE SODIUM
     Dosage: 150 UG, 4 DAYS A WEEK
     Route: 048
  8. NAPROXEN SODIUM [Concomitant]
     Active Substance: NAPROXEN SODIUM
     Route: 048

REACTIONS (9)
  - Haemophagocytic lymphohistiocytosis [Recovered/Resolved]
  - Pyrexia [Recovered/Resolved]
  - Hepatosplenomegaly [Recovered/Resolved]
  - Hyperferritinaemia [Recovered/Resolved]
  - Hypertriglyceridaemia [Recovered/Resolved]
  - Interleukin-2 receptor increased [Recovered/Resolved]
  - Natural killer cell count decreased [Recovered/Resolved]
  - Bicytopenia [Recovered/Resolved]
  - Inflammation [Recovered/Resolved]

NARRATIVE: CASE EVENT DATE: 20210112
